FAERS Safety Report 5677535-7 (Version None)
Quarter: 2008Q1

REPORT INFORMATION
  Report Type: 
  Country: None (occurrence: None)
  Receive Date: 20080324
  Receipt Date: 20080313
  Transmission Date: 20080703
  Serious: Yes (Other)
  Sender: FDA-Public Use
  Company Number: CA-ELI_LILLY_AND_COMPANY-CA200802002838

PATIENT
  Age: 60 Year
  Sex: Female

DRUGS (8)
  1. FORTEO [Suspect]
     Indication: OSTEOPOROSIS
     Dosage: 20 UG, DAILY (1/D)
     Route: 058
     Dates: start: 20070309
  2. PREDNISONE TAB [Concomitant]
  3. HYDROCHLOROTHIAZIDE [Concomitant]
  4. ZESTRIL [Concomitant]
  5. IMURAN [Concomitant]
  6. AMITRIPTYLINE HCL [Concomitant]
  7. PLAQUENIL [Concomitant]
  8. LYRICA [Concomitant]

REACTIONS (2)
  - ARTHRALGIA [None]
  - STRESS FRACTURE [None]
